FAERS Safety Report 11249976 (Version 1)
Quarter: 2015Q3

REPORT INFORMATION
  Report Type: Spontaneous
  Country: US (occurrence: US)
  Receive Date: 20150708
  Receipt Date: 20150708
  Transmission Date: 20151125
  Serious: No
  Sender: FDA-Public Use
  Company Number: US-ELI_LILLY_AND_COMPANY-US201005003214

PATIENT
  Age: 21 Year
  Sex: Male

DRUGS (2)
  1. SYMBYAX [Suspect]
     Active Substance: FLUOXETINE HYDROCHLORIDE\OLANZAPINE
     Indication: BIPOLAR DISORDER
     Dosage: 1 D/F, UNKNOWN
     Route: 065
  2. SYMBYAX [Suspect]
     Active Substance: FLUOXETINE HYDROCHLORIDE\OLANZAPINE
     Dosage: 1 D/F, UNKNOWN
     Route: 065

REACTIONS (2)
  - Vitamin D decreased [Unknown]
  - Weight increased [Unknown]
